FAERS Safety Report 9822174 (Version 1)
Quarter: 2014Q1

REPORT INFORMATION
  Report Type: Spontaneous
  Country: PT (occurrence: PT)
  Receive Date: 20140116
  Receipt Date: 20140116
  Transmission Date: 20141002
  Serious: Yes (Other)
  Sender: FDA-Public Use
  Company Number: PHHY2014PT002822

PATIENT
  Sex: Female

DRUGS (2)
  1. AZITHROMYCIN SANDOZ [Suspect]
     Route: 048
     Dates: start: 20130424
  2. PARACETAMOL [Suspect]
     Indication: DYSPHAGIA
     Route: 048
     Dates: start: 20130424

REACTIONS (2)
  - Acute respiratory distress syndrome [Recovered/Resolved]
  - Speech disorder [Recovered/Resolved]
